FAERS Safety Report 4541626-4 (Version None)
Quarter: 2004Q4

REPORT INFORMATION
  Report Type: 
  Country: None (occurrence: None)
  Receive Date: 20041227
  Receipt Date: 20041214
  Transmission Date: 20050328
  Serious: Yes (Hospitalization)
  Sender: FDA-Public Use
  Company Number: 2004115046

PATIENT
  Sex: Male

DRUGS (8)
  1. LINEZOLID                          (LINEZOLID) [Suspect]
     Indication: ENDOCARDITIS
     Dosage: 600 MG, ORAL
     Route: 048
     Dates: start: 20041101, end: 20041214
  2. PREDNISONE [Concomitant]
  3. DIGITOXIN TAB [Concomitant]
  4. TORSEMIDE [Concomitant]
  5. ESOMEPRAZOLE (ESOMEPRAZOLE) [Concomitant]
  6. ALLOPURINOL [Concomitant]
  7. PHENPROCOUMON (PHENPROCOUMON) [Concomitant]
  8. FERROGLYCINE SULFATE COMPLEX [Concomitant]

REACTIONS (2)
  - EPISTAXIS [None]
  - THROMBOCYTOPENIA [None]
